FAERS Safety Report 7529348-9 (Version None)
Quarter: 2011Q2

REPORT INFORMATION
  Report Type: 
  Country: None (occurrence: None)
  Receive Date: 20110607
  Receipt Date: 20110530
  Transmission Date: 20111010
  Serious: Yes (Other)
  Sender: FDA-Public Use
  Company Number: JP-ROCHE-780371

PATIENT

DRUGS (3)
  1. INTERFERON ALFA-2B [Suspect]
     Dosage: DOSE: 6 MEGA UNITS
     Route: 065
  2. RIBAVIRIN [Suspect]
     Route: 065
  3. PEGINTERFERON ALFA-2B [Suspect]
     Route: 065

REACTIONS (5)
  - DEPRESSION [None]
  - DELIRIUM [None]
  - RETINOPATHY [None]
  - THROMBOCYTOPENIA [None]
  - FATIGUE [None]
